FAERS Safety Report 16184719 (Version 1)
Quarter: 2019Q2

REPORT INFORMATION
  Report Type: Report from Study
  Country: None (occurrence: RO)
  Receive Date: 20190411
  Receipt Date: 20190411
  Transmission Date: 20190711
  Serious: Yes (Hospitalization)
  Sender: FDA-Public Use
  Company Number: RO-ABBVIE-19S-135-2736731-00

PATIENT
  Age: 70 Year
  Sex: Female

DRUGS (15)
  1. DIUREX [Concomitant]
     Indication: FLUID RETENTION
     Route: 048
  2. PIRACETAM [Concomitant]
     Active Substance: PIRACETAM
     Indication: CEREBROVASCULAR DISORDER
     Route: 048
     Dates: start: 2017
  3. EXVIERA [Suspect]
     Active Substance: DASABUVIR
     Indication: HEPATIC CIRRHOSIS
  4. INSULIN [Concomitant]
     Active Substance: INSULIN NOS
     Indication: DIABETES MELLITUS
     Route: 051
     Dates: start: 20181224, end: 20181231
  5. VIEKIRAX [Suspect]
     Active Substance: OMBITASVIR\PARITAPREVIR\RITONAVIR
     Indication: HEPATIC CIRRHOSIS
  6. SERMION [Concomitant]
     Active Substance: NICERGOLINE
     Indication: CEREBROVASCULAR DISORDER
     Route: 048
     Dates: start: 2017
  7. EXVIERA [Suspect]
     Active Substance: DASABUVIR
     Indication: HEPATITIS C
     Route: 048
     Dates: start: 20181106, end: 20190129
  8. ASPENTER [Concomitant]
     Active Substance: ASPIRIN
     Indication: HYPERTENSION
     Route: 048
  9. VIEKIRAX [Suspect]
     Active Substance: OMBITASVIR\PARITAPREVIR\RITONAVIR
     Indication: HEPATITIS C
     Route: 048
     Dates: start: 20181106, end: 20190129
  10. LERIDIP [Concomitant]
     Indication: HYPERTENSION
     Route: 048
  11. OMERAN [Concomitant]
     Indication: INTRA-ABDOMINAL FLUID COLLECTION
     Route: 048
  12. INSULIN [Concomitant]
     Active Substance: INSULIN NOS
     Route: 051
     Dates: start: 20190101
  13. DILTIAZEM. [Concomitant]
     Active Substance: DILTIAZEM
     Indication: HYPERTENSION
     Route: 048
  14. PRESTARIUM [Concomitant]
     Active Substance: PERINDOPRIL
     Indication: HYPERTENSION
     Route: 048
  15. FUROSEMID [Concomitant]
     Active Substance: FUROSEMIDE
     Indication: FLUID RETENTION
     Route: 048

REACTIONS (5)
  - Blood glucose increased [Not Recovered/Not Resolved]
  - Nausea [Recovered/Resolved]
  - Restlessness [Not Recovered/Not Resolved]
  - Kidney infection [Unknown]
  - Infection [Not Recovered/Not Resolved]

NARRATIVE: CASE EVENT DATE: 201812
